FAERS Safety Report 21710347 (Version 1)
Quarter: 2022Q4

REPORT INFORMATION
  Report Type: Report from Study
  Country: US (occurrence: US)
  Receive Date: 20221211
  Receipt Date: 20221211
  Transmission Date: 20230112
  Serious: Yes (Other)
  Sender: FDA-Public Use
  Company Number: US-ABBVIE-4231473

PATIENT
  Age: 67 Year
  Sex: Male

DRUGS (1)
  1. SKYRIZI [Suspect]
     Active Substance: RISANKIZUMAB-RZAA
     Indication: Psoriatic arthropathy
     Route: 058

REACTIONS (9)
  - Spinal fusion surgery [Unknown]
  - Therapeutic response shortened [Unknown]
  - Apathy [Unknown]
  - Pain [Unknown]
  - Headache [Unknown]
  - Weight loss poor [Unknown]
  - Skin mass [Not Recovered/Not Resolved]
  - Blood pressure fluctuation [Unknown]
  - Joint range of motion decreased [Unknown]

NARRATIVE: CASE EVENT DATE: 20221101
